FAERS Safety Report 6118610-2 (Version None)
Quarter: 2009Q1

REPORT INFORMATION
  Report Type: 
  Country: None (occurrence: None)
  Receive Date: 20090314
  Receipt Date: 20090218
  Transmission Date: 20090719
  Serious: No
  Sender: FDA-Public Use
  Company Number: US-ABBOTT-09P-163-0558832-00

PATIENT
  Sex: Male

DRUGS (8)
  1. HUMIRA [Suspect]
     Indication: CROHN'S DISEASE
     Dosage: 1 PEN EOW UNTIL REMISSION
     Route: 058
     Dates: start: 20070101, end: 20070101
  2. HUMIRA [Suspect]
     Dosage: 2 PENS
     Route: 058
     Dates: start: 20081201
  3. NEXIUM [Concomitant]
     Indication: DRUG USE FOR UNKNOWN INDICATION
  4. PENTASA [Concomitant]
     Indication: CROHN'S DISEASE
  5. CLARINEX [Concomitant]
     Indication: DRUG USE FOR UNKNOWN INDICATION
  6. SINGULAIR [Concomitant]
     Indication: DRUG USE FOR UNKNOWN INDICATION
  7. PROZAC [Concomitant]
     Indication: DRUG USE FOR UNKNOWN INDICATION
  8. ZOFRAN [Concomitant]
     Indication: NAUSEA

REACTIONS (10)
  - CROHN'S DISEASE [None]
  - DRUG INEFFECTIVE [None]
  - FATIGUE [None]
  - MASS [None]
  - MYALGIA [None]
  - NAUSEA [None]
  - PAIN [None]
  - RECTAL HAEMORRHAGE [None]
  - STOMATITIS [None]
  - VASCULAR RUPTURE [None]
